FAERS Safety Report 21885454 (Version 1)
Quarter: 2023Q1

REPORT INFORMATION
  Report Type: Spontaneous
  Country: GB (occurrence: GB)
  Receive Date: 20230119
  Receipt Date: 20230119
  Transmission Date: 20230418
  Serious: Yes (Life-Threatening, Other)
  Sender: FDA-Public Use
  Company Number: GB-MHRA-MED-202301141825329850-QJPND

PATIENT
  Age: 54 Year
  Sex: Female
  Weight: 63 kg

DRUGS (1)
  1. LISDEXAMFETAMINE DIMESYLATE [Suspect]
     Active Substance: LISDEXAMFETAMINE DIMESYLATE
     Indication: Attention deficit hyperactivity disorder
     Dosage: UNK
     Route: 065
     Dates: start: 20220905, end: 20221212

REACTIONS (2)
  - Suicidal ideation [Recovering/Resolving]
  - Medication error [Unknown]

NARRATIVE: CASE EVENT DATE: 20220905
